FAERS Safety Report 8684493 (Version 2)
Quarter: 2012Q4

REPORT INFORMATION
  Report Type: 
  Country: BR (occurrence: BR)
  Receive Date: 20120726
  Receipt Date: 20121101
  Transmission Date: 20130627
  Serious: Yes (Hospitalization, Other)
  Sender: FDA-Public Use
  Company Number: BR-ASTRAZENECA-2012SE51272

PATIENT
  Age: 78 Year
  Sex: Male
  Weight: 64 kg

DRUGS (1)
  1. ATACAND [Suspect]
     Indication: HYPERTENSION
     Dosage: DAILY
     Route: 048
     Dates: start: 2011, end: 201110

REACTIONS (5)
  - Lung neoplasm malignant [Recovered/Resolved]
  - Arrhythmia [Recovered/Resolved]
  - Gastrointestinal disorder [Not Recovered/Not Resolved]
  - Blood pressure increased [Recovered/Resolved]
  - Drug ineffective [Unknown]
